FAERS Safety Report 6235695-3 (Version None)
Quarter: 2009Q2

REPORT INFORMATION
  Report Type: 
  Country: None (occurrence: None)
  Receive Date: 20090618
  Receipt Date: 20090611
  Transmission Date: 20091009
  Serious: Yes (Other)
  Sender: FDA-Public Use
  Company Number: US-ELI_LILLY_AND_COMPANY-US200906003211

PATIENT
  Sex: Male

DRUGS (5)
  1. HUMALOG [Suspect]
     Dosage: UNK, UNK
     Dates: start: 20040101
  2. HUMALOG MIX 75/25 [Suspect]
     Dosage: UNK, UNK
     Dates: start: 20010101, end: 20020101
  3. HUMALOG MIX 50/50 [Suspect]
     Dosage: UNK, UNK
     Dates: start: 20020101, end: 20030101
  4. FORTEO [Concomitant]
     Dates: start: 20060801, end: 20080801
  5. RAMIPRIL [Concomitant]

REACTIONS (12)
  - ANAEMIA [None]
  - BLINDNESS TRANSIENT [None]
  - BLOOD GLUCOSE DECREASED [None]
  - BLOOD GLUCOSE INCREASED [None]
  - CATHETER PLACEMENT [None]
  - CATHETER SITE HAEMORRHAGE [None]
  - HAEMORRHAGE [None]
  - LOSS OF CONSCIOUSNESS [None]
  - OSTEOPOROSIS [None]
  - PROSTATE CANCER [None]
  - PROSTATOMEGALY [None]
  - RENAL FAILURE CHRONIC [None]
